FAERS Safety Report 8041101 (Version 3)
Quarter: 2013Q3

REPORT INFORMATION
  Report Type: Report from Study
  Country: US (occurrence: US)
  Receive Date: 20110718
  Receipt Date: 20130712
  Transmission Date: 20140515
  Serious: Yes (Hospitalization)
  Sender: FDA-Public Use
  Company Number: US-BRISTOL-MYERS SQUIBB COMPANY-15803273

PATIENT
  Age: 80 Year
  Sex: Female
  Weight: 71.3 kg

DRUGS (13)
  1. METFORMIN HCL XR [Suspect]
     Indication: TYPE 2 DIABETES MELLITUS
     Route: 048
     Dates: start: 2007, end: 20110515
  2. GLYBURIDE [Suspect]
     Indication: TYPE 2 DIABETES MELLITUS
     Route: 048
     Dates: start: 1997
  3. NOVOLOG [Suspect]
     Indication: TYPE 2 DIABETES MELLITUS
     Dosage: NOVOLOG-R. 1DF: 20UNITS.
     Route: 058
     Dates: start: 2008
  4. LANTUS [Suspect]
     Indication: DIABETES MELLITUS
     Dosage: 1DF: 50UNITS.
     Route: 058
     Dates: start: 2007
  5. PLACEBO [Suspect]
     Indication: TYPE 2 DIABETES MELLITUS
     Dates: start: 20101130
  6. SYNTHROID [Concomitant]
     Indication: HYPOTHYROIDISM
     Route: 048
     Dates: start: 2000
  7. PLAVIX [Concomitant]
     Indication: CORONARY ARTERY DISEASE
     Route: 048
     Dates: start: 200712
  8. PRAVASTATINE [Concomitant]
     Indication: DYSLIPIDAEMIA
     Route: 048
     Dates: start: 201003
  9. PHOSLO [Concomitant]
     Indication: RENAL FAILURE CHRONIC
     Route: 048
     Dates: start: 20110516
  10. TOPROL XL [Concomitant]
     Indication: HYPERTENSION
     Route: 048
     Dates: start: 20110516
  11. TRAMADOL [Concomitant]
     Indication: BACK PAIN
     Route: 048
     Dates: start: 201004, end: 20110515
  12. FLEXERIL [Concomitant]
     Indication: MUSCLE SPASMS
     Route: 048
     Dates: start: 201010, end: 20110515
  13. ENALAPRIL [Concomitant]
     Indication: HYPERTENSION
     Route: 048
     Dates: start: 2007, end: 20110515

REACTIONS (1)
  - Renal failure acute [Recovered/Resolved]
